FAERS Safety Report 11324512 (Version 1)
Quarter: 2015Q3

REPORT INFORMATION
  Report Type: Spontaneous
  Country: CH (occurrence: CH)
  Receive Date: 20150730
  Receipt Date: 20150730
  Transmission Date: 20151125
  Serious: Yes (Hospitalization)
  Sender: FDA-Public Use
  Company Number: CH-TEVA-577554ISR

PATIENT
  Age: 15 Year
  Sex: Female
  Weight: 48 kg

DRUGS (6)
  1. CYCLOPHOSPHAMIDE. [Concomitant]
     Active Substance: CYCLOPHOSPHAMIDE
     Indication: B PRECURSOR TYPE ACUTE LEUKAEMIA
     Dosage: 1000 MG/M2 DAILY; CONTINUING
     Route: 041
     Dates: start: 20150119
  2. CYTARABINE. [Concomitant]
     Active Substance: CYTARABINE
     Indication: B PRECURSOR TYPE ACUTE LEUKAEMIA
     Dosage: 115 MILLIGRAM DAILY;
     Route: 041
     Dates: start: 20150119, end: 20150122
  3. METHOTREXAT-TEVA 50 MG/2 ML [Suspect]
     Active Substance: METHOTREXATE
     Dosage: 15 MILLIGRAM DAILY;
     Route: 037
     Dates: start: 20150126
  4. BACTRIM [Concomitant]
     Active Substance: SULFAMETHOXAZOLE\TRIMETHOPRIM
     Indication: ANTIFUNGAL PROPHYLAXIS
     Route: 048
     Dates: start: 20140618
  5. THIOGUANINE [Concomitant]
     Active Substance: THIOGUANINE
     Indication: B PRECURSOR TYPE ACUTE LEUKAEMIA
     Dosage: 100MG ON 4 OF 7 DAYS, 80MG ON 3 OF 7 DAYS
     Route: 048
     Dates: start: 20150119, end: 20150202
  6. METHOTREXAT-TEVA 50 MG/2 ML [Suspect]
     Active Substance: METHOTREXATE
     Indication: B PRECURSOR TYPE ACUTE LEUKAEMIA
     Dosage: 15 MILLIGRAM DAILY;
     Route: 037
     Dates: start: 20150119

REACTIONS (8)
  - Paraesthesia oral [Recovered/Resolved]
  - Confusional state [Recovered/Resolved]
  - Monoparesis [Recovered/Resolved]
  - Tremor [Recovered/Resolved]
  - Dysarthria [Recovered/Resolved]
  - Hemiparesis [Recovered/Resolved]
  - Paraesthesia [Recovered/Resolved]
  - Leukoencephalopathy [Recovered/Resolved with Sequelae]

NARRATIVE: CASE EVENT DATE: 20150201
